FAERS Safety Report 7727134-8 (Version None)
Quarter: 2011Q3

REPORT INFORMATION
  Report Type: 
  Country: None (occurrence: None)
  Receive Date: 20110902
  Receipt Date: 20110822
  Transmission Date: 20111222
  Serious: Yes (Hospitalization)
  Sender: FDA-Public Use
  Company Number: JP-NOVOPROD-324145

PATIENT

DRUGS (10)
  1. ASPIRIN [Concomitant]
     Dosage: 100 MG, QD
     Route: 048
  2. OMEPRAZOLE [Concomitant]
     Dosage: 20 MG, QD
     Route: 048
  3. GASMOTIN [Concomitant]
     Dosage: 15 MG, QD
     Route: 048
  4. MIGLITOL [Concomitant]
     Dosage: 150 MG, QD
     Route: 048
  5. ALMARL [Concomitant]
     Dosage: 10 MG, QD
     Route: 048
  6. LASIX [Concomitant]
     Dosage: 20 MG, QD
     Route: 048
  7. RHYTHMY [Concomitant]
     Dosage: 1 MG, QD
     Route: 048
  8. BIOFERMIN [Concomitant]
     Dosage: 18 MG, QD
     Route: 048
  9. NOVORAPID 30 MIX CHU FLEXPEN [Suspect]
     Indication: LATENT AUTOIMMUNE DIABETES IN ADULTS
     Dosage: 12 U, QD
     Route: 058
     Dates: start: 20090701
  10. NOVORAPID CHU FLEXPEN [Suspect]
     Indication: LATENT AUTOIMMUNE DIABETES IN ADULTS
     Dosage: 23 U, QD
     Route: 058
     Dates: start: 20090701

REACTIONS (2)
  - ANTI-INSULIN ANTIBODY POSITIVE [None]
  - HYPOGLYCAEMIA [None]
